FAERS Safety Report 10404341 (Version 1)
Quarter: 2014Q1

REPORT INFORMATION
  Report Type: Spontaneous
  Country: US (occurrence: None)
  Receive Date: 20140228
  Receipt Date: 20140228
  Transmission Date: 20141002
  Serious: No
  Sender: FDA-Public Use
  Company Number: 225168 LEO

PATIENT
  Sex: Female

DRUGS (2)
  1. PICATO (INGENOL MEBUTATE) (0.015 %, GEL) [Suspect]
     Indication: ACTINIC KERATOSIS
     Route: 061
     Dates: start: 20131130, end: 20131201
  2. SYNTHROID (LEVOTHYROXINE SODIUM) [Concomitant]

REACTIONS (2)
  - Erythema [None]
  - Application site pruritus [None]
